FAERS Safety Report 21891887 (Version 1)
Quarter: 2023Q1

REPORT INFORMATION
  Report Type: Spontaneous
  Country: FR (occurrence: FR)
  Receive Date: 20230120
  Receipt Date: 20230120
  Transmission Date: 20230418
  Serious: Yes (Death, Other)
  Sender: FDA-Public Use
  Company Number: FR-BAXTER-2022BAX026301

PATIENT
  Age: 60 Year
  Sex: Female

DRUGS (3)
  1. DEXAMETHASONE [Suspect]
     Active Substance: DEXAMETHASONE
     Indication: Product used for unknown indication
     Dosage: 40 MG (40 MG/DOSE 1 DOSE(S)/WEEK 3 WEEK(S)/CYCLE
     Route: 065
     Dates: end: 20200114
  2. BORTEZOMIB [Suspect]
     Active Substance: BORTEZOMIB
     Indication: Product used for unknown indication
     Dosage: 1.3 MG(1.3 MG/M2/DOSE 1 DOSE(S)/ WEEK 3 WEEK
     Route: 065
     Dates: end: 20200114
  3. CYCLOPHOSPHAMIDE [Suspect]
     Active Substance: CYCLOPHOSPHAMIDE
     Indication: Product used for unknown indication
     Dosage: 40 MG(40 MG/DOSE 4 DOSE(S)/WEEK 1 WEEKS(S)/CYCLE
     Route: 065
     Dates: end: 20200114

REACTIONS (2)
  - Cerebrovascular accident [Fatal]
  - Hypertension [Fatal]
